FAERS Safety Report 19916826 (Version 1)
Quarter: 2021Q4

REPORT INFORMATION
  Report Type: Spontaneous
  Country: US (occurrence: US)
  Receive Date: 20211004
  Receipt Date: 20211004
  Transmission Date: 20220303
  Serious: No
  Sender: FDA-Public Use
  Company Number: US-OTSUKA-2020_023444

PATIENT
  Sex: Female

DRUGS (2)
  1. ARIPIPRAZOLE [Suspect]
     Active Substance: ARIPIPRAZOLE
     Indication: Insomnia
     Dosage: 2 MG, UNK
     Route: 065
     Dates: start: 20200924
  2. ZOLOFT [Concomitant]
     Active Substance: SERTRALINE HYDROCHLORIDE
     Indication: Insomnia
     Dosage: UNK
     Route: 065

REACTIONS (1)
  - Drug effective for unapproved indication [Unknown]

NARRATIVE: CASE EVENT DATE: 20200924
